FAERS Safety Report 15810242 (Version 1)
Quarter: 2019Q1

REPORT INFORMATION
  Report Type: Spontaneous
  Country: US (occurrence: US)
  Receive Date: 20190111
  Receipt Date: 20190111
  Transmission Date: 20190417
  Serious: Yes (Hospitalization)
  Sender: FDA-Public Use
  Company Number: US-ROCHE-2179433

PATIENT
  Age: 47 Year
  Sex: Male

DRUGS (10)
  1. RITUXIMAB. [Suspect]
     Active Substance: RITUXIMAB
     Indication: PRIMARY EFFUSION LYMPHOMA
     Route: 065
  2. OXALIPLATIN. [Concomitant]
     Active Substance: OXALIPLATIN
  3. CYCLOPHOSPHAMIDE. [Concomitant]
     Active Substance: CYCLOPHOSPHAMIDE
  4. PREDNISONE. [Concomitant]
     Active Substance: PREDNISONE
  5. VINCRISTINE [Concomitant]
     Active Substance: VINCRISTINE
  6. ETOPOSIDE. [Concomitant]
     Active Substance: ETOPOSIDE
  7. DOXORUBICIN [Concomitant]
     Active Substance: DOXORUBICIN
  8. GEMCITABINE [Concomitant]
     Active Substance: GEMCITABINE\GEMCITABINE HYDROCHLORIDE
  9. BRENTUXIMAB [Concomitant]
     Active Substance: BRENTUXIMAB VEDOTIN
  10. IFOSFAMIDE. [Concomitant]
     Active Substance: IFOSFAMIDE

REACTIONS (1)
  - Herpes sepsis [Recovering/Resolving]
